FAERS Safety Report 11492773 (Version 1)
Quarter: 2015Q3

REPORT INFORMATION
  Report Type: Spontaneous
  Country: US (occurrence: US)
  Receive Date: 20150911
  Receipt Date: 20150911
  Transmission Date: 20151125
  Serious: Yes (Other)
  Sender: FDA-Public Use
  Company Number: US-ROCHE-1632905

PATIENT
  Age: 93 Year
  Sex: Male

DRUGS (2)
  1. PREDNISONE. [Concomitant]
     Active Substance: PREDNISONE
  2. RITUXAN [Suspect]
     Active Substance: RITUXIMAB
     Indication: WALDENSTROM^S MACROGLOBULINAEMIA
     Dosage: 8 TOTAL TREATMENTS OVER PAST 3 YEARS
     Route: 065
     Dates: end: 201506

REACTIONS (3)
  - Ageusia [Recovering/Resolving]
  - Rash erythematous [Not Recovered/Not Resolved]
  - Alopecia [Unknown]
